FAERS Safety Report 8860421 (Version 1)
Quarter: 2012Q4

REPORT INFORMATION
  Report Type: 
  Country: US (occurrence: US)
  Receive Date: 20121025
  Receipt Date: 20121025
  Transmission Date: 20130627
  Serious: No
  Sender: FDA-Public Use
  Company Number: US-009507513-1210USA009160

PATIENT
  Sex: Male

DRUGS (3)
  1. PEGINTRON [Suspect]
     Dosage: 96 Microgram, qw
     Dates: start: 201209
  2. RIBASPHERE [Suspect]
  3. TELAPREVIR [Suspect]

REACTIONS (2)
  - Nausea [Unknown]
  - Decreased appetite [Unknown]
